FAERS Safety Report 5359595-6 (Version None)
Quarter: 2007Q2

REPORT INFORMATION
  Report Type: 
  Country: None (occurrence: None)
  Receive Date: 20070530
  Receipt Date: 20061018
  Transmission Date: 20071010
  Serious: Yes (Hospitalization)
  Sender: FDA-Public Use
  Company Number: US200606001969

PATIENT
  Sex: Female
  Weight: 68 kg

DRUGS (4)
  1. ZYPREXA [Suspect]
     Dosage: 5 MG
     Dates: start: 20040301, end: 20050101
  2. QUETIAPINE [Concomitant]
  3. DIVALPROEX SODIUM [Concomitant]
  4. CITALOPRAM HYDROBROMIDE [Concomitant]

REACTIONS (1)
  - DIABETES MELLITUS [None]
